FAERS Safety Report 8561813-8 (Version None)
Quarter: 2012Q3

REPORT INFORMATION
  Report Type: 
  Country: None (occurrence: None)
  Receive Date: 20120802
  Receipt Date: 20120730
  Transmission Date: 20120928
  Serious: Yes (Other)
  Sender: FDA-Public Use
  Company Number: BR-009507513-1208BRA000170

PATIENT

DRUGS (2)
  1. OVESTRION [Suspect]
     Dosage: UNK
     Route: 067
  2. OVESTRION [Suspect]

REACTIONS (3)
  - NEOPLASM MALIGNANT [None]
  - BREAST CANCER FEMALE [None]
  - CONTRAINDICATION TO MEDICAL TREATMENT [None]
